FAERS Safety Report 9739290 (Version 2)
Quarter: 2013Q4

REPORT INFORMATION
  Report Type: Spontaneous
  Country: US (occurrence: US)
  Receive Date: 20131209
  Receipt Date: 20131213
  Transmission Date: 20140711
  Serious: Yes (Other)
  Sender: FDA-Public Use
  Company Number: US-ELI_LILLY_AND_COMPANY-US201312001966

PATIENT
  Age: 37 Year
  Sex: Female

DRUGS (2)
  1. OLANZAPINE [Suspect]
     Indication: WEIGHT INCREASED
     Route: 065
  2. OLANZAPINE [Suspect]
     Indication: ANOREXIA NERVOSA

REACTIONS (2)
  - Acute hepatic failure [Recovered/Resolved]
  - Off label use [Unknown]
